FAERS Safety Report 9052220 (Version 2)
Quarter: 2013Q1

REPORT INFORMATION
  Report Type: Spontaneous
  Country: BR (occurrence: BR)
  Receive Date: 20130206
  Receipt Date: 20130312
  Transmission Date: 20140127
  Serious: Yes (Other)
  Sender: FDA-Public Use
  Company Number: PHHY2013BR010754

PATIENT
  Sex: Female

DRUGS (6)
  1. DIOVAN [Suspect]
     Indication: HYPERTENSION
     Dosage: 320 MG, UNK
  2. DIOVAN [Suspect]
     Dosage: 2 DF (320 MG ), UNK
  3. CAPTOPRIL [Suspect]
     Indication: HYPERTENSION
     Dosage: UNK UKN, UNK
  4. LOSARTAN [Suspect]
     Indication: HYPERTENSION
     Dosage: 4 DF, UNK
     Route: 048
     Dates: start: 201210, end: 201301
  5. ATENSINA [Concomitant]
     Indication: HYPERTENSION
     Dosage: 1 DF, DAILY
     Route: 048
     Dates: start: 201210
  6. APRESOLINA [Concomitant]
     Indication: HYPERTENSION
     Dosage: 2 DF, DAILY
     Route: 048
     Dates: start: 201210

REACTIONS (3)
  - Hypertension [Recovering/Resolving]
  - Stress [Recovering/Resolving]
  - Drug resistance [Recovering/Resolving]
